FAERS Safety Report 6560867-8 (Version None)
Quarter: 2010Q1

REPORT INFORMATION
  Report Type: 
  Country: None (occurrence: None)
  Receive Date: 20100129
  Receipt Date: 20090923
  Transmission Date: 20100710
  Serious: No
  Sender: FDA-Public Use
  Company Number: US-ABBOTT-09P-163-0599653-00

PATIENT
  Sex: Female
  Weight: 63.56 kg

DRUGS (11)
  1. HUMIRA [Suspect]
     Indication: RHEUMATOID ARTHRITIS
     Route: 058
     Dates: start: 20080101
  2. VICODIN [Concomitant]
     Indication: PAIN
     Route: 048
  3. LEVOTHYROXINE SODIUM [Concomitant]
     Indication: DRUG USE FOR UNKNOWN INDICATION
  4. RANITIDINE [Concomitant]
     Indication: GASTROOESOPHAGEAL REFLUX DISEASE
  5. TRICOR [Concomitant]
     Indication: BLOOD CHOLESTEROL INCREASED
  6. LIDODERM [Concomitant]
     Indication: PAIN
     Dosage: 12 HOURS A DAY
     Route: 062
  7. MENOPAUSE PATCH [Concomitant]
     Indication: HORMONE REPLACEMENT THERAPY
     Dosage: 2 PATCHES
     Route: 062
  8. PROMETRIUM [Concomitant]
     Indication: HORMONE REPLACEMENT THERAPY
     Dosage: FIRST 10 DAYS OF EVERY MONTH
  9. LEXAPRO [Concomitant]
     Indication: DEPRESSION
  10. UNKNOWN BLOOD PRESSURE PILL [Concomitant]
     Indication: HYPERTENSION
  11. DIVION HCTZ [Concomitant]
     Indication: HYPERTENSION

REACTIONS (2)
  - CYSTITIS [None]
  - RHEUMATOID ARTHRITIS [None]
